FAERS Safety Report 7363077 (Version 6)
Quarter: 2013Q2

REPORT INFORMATION
  Report Type: Spontaneous
  Country: US (occurrence: US)
  Receive Date: 20100422
  Receipt Date: 20130415
  Transmission Date: 20140414
  Serious: No
  Sender: FDA-Public Use
  Company Number: US-ASTRAZENECA-2010SE06855

PATIENT
  Age: 74 Year
  Sex: Female
  Weight: 56.7 kg

DRUGS (5)
  1. TOPROL XL [Suspect]
     Indication: BLOOD PRESSURE ABNORMAL
     Route: 048
  2. TOPROL XL [Suspect]
     Indication: BLOOD PRESSURE ABNORMAL
     Route: 048
  3. TOPROL XL [Suspect]
     Indication: BLOOD PRESSURE ABNORMAL
     Dosage: GENERIC
     Route: 048
  4. PRILOSEC [Suspect]
     Route: 048
  5. COZARR [Concomitant]
     Indication: BLOOD PRESSURE ABNORMAL

REACTIONS (7)
  - Blood pressure increased [Recovered/Resolved]
  - Feeling abnormal [Unknown]
  - Sinusitis [Unknown]
  - Flushing [Unknown]
  - Rash erythematous [Unknown]
  - Urticaria [Unknown]
  - Drug ineffective [Unknown]
